FAERS Safety Report 20337025 (Version 7)
Quarter: 2022Q4

REPORT INFORMATION
  Report Type: Report from Study
  Country: CH (occurrence: None)
  Receive Date: 20220114
  Receipt Date: 20221004
  Transmission Date: 20230113
  Serious: Yes (Hospitalization)
  Sender: FDA-Public Use
  Company Number: CH-ROCHE-3000783

PATIENT
  Age: 51 Year
  Sex: Male
  Weight: 81.4 kg

DRUGS (12)
  1. TRASTUZUMAB [Suspect]
     Active Substance: TRASTUZUMAB
     Indication: HER2 positive gastric cancer
     Dosage: LAST ADMINISTRATION OF DRUG ON 24/NOV/2021
     Route: 042
     Dates: start: 20210324
  2. PERTUZUMAB [Suspect]
     Active Substance: PERTUZUMAB
     Indication: HER2 positive gastric cancer
     Dosage: LAST ADMINISTRATION OF DRUG ON 24/NOV/2021
     Route: 042
     Dates: start: 20210324, end: 20210324
  3. FLUOROURACIL [Suspect]
     Active Substance: FLUOROURACIL
     Indication: HER2 positive gastric cancer
     Route: 042
     Dates: start: 20210324, end: 20210507
  4. DOCETAXEL [Suspect]
     Active Substance: DOCETAXEL
     Indication: HER2 positive gastric cancer
     Route: 042
     Dates: start: 20210324, end: 20210507
  5. OXALIPLATIN [Suspect]
     Active Substance: OXALIPLATIN
     Indication: HER2 positive gastric cancer
     Route: 042
     Dates: start: 20210324, end: 20210507
  6. LEUCOVORIN [Suspect]
     Active Substance: LEUCOVORIN
     Indication: HER2 positive gastric cancer
     Route: 042
     Dates: start: 20210324, end: 20210507
  7. AMOXICILLIN [Concomitant]
     Active Substance: AMOXICILLIN
     Indication: Pleurisy
     Route: 048
     Dates: start: 20211231, end: 20220107
  8. CLINDAMYCIN [Concomitant]
     Active Substance: CLINDAMYCIN
     Indication: Pleurisy
     Route: 048
     Dates: start: 20211231, end: 20220107
  9. MORPHINE [Concomitant]
     Active Substance: MORPHINE
     Route: 048
     Dates: start: 20220131
  10. ACETAMINOPHEN [Concomitant]
     Active Substance: ACETAMINOPHEN
     Route: 048
     Dates: start: 20220120
  11. CLOMETHIAZOLE [Concomitant]
     Active Substance: CLOMETHIAZOLE
     Route: 048
     Dates: start: 20220115
  12. METAMIZOL [Concomitant]
     Active Substance: METAMIZOLE SODIUM
     Route: 048
     Dates: start: 20220216

REACTIONS (1)
  - Empyema [Not Recovered/Not Resolved]

NARRATIVE: CASE EVENT DATE: 20220107
